FAERS Safety Report 5130561-9 (Version None)
Quarter: 2006Q4

REPORT INFORMATION
  Report Type: 
  Country: None (occurrence: None)
  Receive Date: 20061017
  Receipt Date: 20061017
  Transmission Date: 20070319
  Serious: Yes (Hospitalization, Other)
  Sender: FDA-Public Use
  Company Number: None

PATIENT
  Age: 69 Year
  Sex: Male

DRUGS (5)
  1. THALIDOMIDE [Suspect]
     Indication: MULTIPLE MYELOMA
     Dosage: 100 MG QHS PO
     Route: 048
     Dates: start: 20060215, end: 20060221
  2. LEVAQUIN [Concomitant]
  3. MULTI-VITAMIN [Concomitant]
  4. NEUPOGEN [Concomitant]
  5. ARANESP [Concomitant]

REACTIONS (1)
  - PANCYTOPENIA [None]
